FAERS Safety Report 8346549-0 (Version None)
Quarter: 2012Q2

REPORT INFORMATION
  Report Type: 
  Country: None (occurrence: None)
  Receive Date: 20120509
  Receipt Date: 20120430
  Transmission Date: 20120825
  Serious: Yes (Other)
  Sender: FDA-Public Use
  Company Number: US-SANOFI-AVENTIS-2012SA020340

PATIENT
  Age: 62 Year
  Sex: Male
  Weight: 78.18 kg

DRUGS (3)
  1. SOLOSTAR [Suspect]
     Dates: start: 20110101
  2. LANTUS [Suspect]
     Dosage: 10 UNITS IN AM AND 20 UNITS IN PM, 18 UNITS IN PM
     Route: 058
     Dates: start: 20110101
  3. LANTUS [Suspect]
     Dosage: 10 UNITS IN AM AND 20 UNITS IN PM, 18 UNITS IN PM
     Route: 058
     Dates: start: 20110101

REACTIONS (5)
  - TOE AMPUTATION [None]
  - VASCULAR GRAFT [None]
  - PAIN IN EXTREMITY [None]
  - DEVICE BREAKAGE [None]
  - DEVICE LEAKAGE [None]
